FAERS Safety Report 6382140-3 (Version None)
Quarter: 2009Q3

REPORT INFORMATION
  Report Type: 
  Country: None (occurrence: None)
  Receive Date: 20090925
  Receipt Date: 20090914
  Transmission Date: 20100115
  Serious: Yes (Hospitalization)
  Sender: FDA-Public Use
  Company Number: 230929J09USA

PATIENT
  Age: 47 Year
  Sex: Female
  Weight: 77 kg

DRUGS (7)
  1. REBIF [Suspect]
     Indication: MULTIPLE SCLEROSIS
     Dosage: 44 MCG, 3 IN 1 WEEKS, SUBCUTANEOUS
     Route: 058
     Dates: start: 20070401
  2. BENICAR [Concomitant]
  3. TEKTURNA [Concomitant]
  4. TOPROL-XL [Concomitant]
  5. CELEBREX [Concomitant]
  6. CYMBALTA [Concomitant]
  7. NEXIUM [Concomitant]

REACTIONS (5)
  - BLOOD PRESSURE INCREASED [None]
  - DEHYDRATION [None]
  - GASTRIC INFECTION [None]
  - GASTROINTESTINAL VIRAL INFECTION [None]
  - UNRESPONSIVE TO STIMULI [None]
